FAERS Safety Report 15173102 (Version 1)
Quarter: 2018Q3

REPORT INFORMATION
  Report Type: Spontaneous
  Country: US (occurrence: US)
  Receive Date: 20180622
  Receipt Date: 20180622
  Transmission Date: 20181010
  Serious: No
  Sender: FDA-Public Use
  Company Number: None

PATIENT
  Age: 75 Year
  Sex: Male

DRUGS (1)
  1. TOBRAMYCIN NEB 300MG/5ML [Suspect]
     Active Substance: TOBRAMYCIN
     Dates: start: 20180409, end: 20180622

REACTIONS (3)
  - Oropharyngeal pain [None]
  - Throat irritation [None]
  - Secretion discharge [None]

NARRATIVE: CASE EVENT DATE: 20180402
